FAERS Safety Report 4872707-3 (Version None)
Quarter: 2006Q1

REPORT INFORMATION
  Report Type: 
  Country: None (occurrence: None)
  Receive Date: 20060103
  Receipt Date: 20051220
  Transmission Date: 20060701
  Serious: Yes (Other)
  Sender: FDA-Public Use
  Company Number: US200512003507

PATIENT
  Age: 48 Year
  Sex: Male

DRUGS (1)
  1. ZYPREXA [Suspect]
     Indication: DELUSION
     Dosage: 15 MG, DAILY (1/D)
     Dates: start: 20010101

REACTIONS (5)
  - CALCINOSIS [None]
  - PANCREATIC CYST [None]
  - PANCREATIC DISORDER [None]
  - PANCREATIC OPERATION [None]
  - PANCREATITIS [None]
